FAERS Safety Report 17003086 (Version 1)
Quarter: 2019Q4

REPORT INFORMATION
  Report Type: Spontaneous
  Country: PT (occurrence: PT)
  Receive Date: 20191107
  Receipt Date: 20191107
  Transmission Date: 20200122
  Serious: Yes (Other)
  Sender: FDA-Public Use
  Company Number: PT-TEVA-2019-PT-1132238

PATIENT
  Age: 3 Decade
  Sex: Female

DRUGS (5)
  1. DEFLAZACORT [Suspect]
     Active Substance: DEFLAZACORT
     Route: 048
  2. FLUTICASONE FUROATE [Suspect]
     Active Substance: FLUTICASONE FUROATE
     Route: 065
  3. MOMETASONE FUROATE. [Suspect]
     Active Substance: MOMETASONE FUROATE
     Route: 065
  4. BECLOMETASONE [Suspect]
     Active Substance: BECLOMETHASONE DIPROPIONATE
     Route: 065
  5. BUDESONIDE. [Suspect]
     Active Substance: BUDESONIDE
     Route: 045

REACTIONS (7)
  - Eyelid oedema [Unknown]
  - Dermatitis contact [Unknown]
  - Hypersensitivity [Unknown]
  - Angioedema [Unknown]
  - Accidental exposure to product [Unknown]
  - Erythema multiforme [Unknown]
  - Rhinitis allergic [Unknown]
